FAERS Safety Report 9057427 (Version 1)
Quarter: 2013Q1

REPORT INFORMATION
  Report Type: Report from Study
  Country: US (occurrence: US)
  Receive Date: 20130204
  Receipt Date: 20130204
  Transmission Date: 20140127
  Serious: Yes (Other)
  Sender: FDA-Public Use
  Company Number: US-ABBOTT-12P-163-0936128-00

PATIENT
  Age: 35 None
  Sex: Female
  Weight: 37.23 kg

DRUGS (9)
  1. HUMIRA 40 MG/0.8 ML PEN [Suspect]
     Indication: RHEUMATOID ARTHRITIS
     Dates: start: 20120222
  2. HUMIRA 40 MG/0.8 ML PEN [Suspect]
     Dates: start: 20120511
  3. PREDNISONE [Concomitant]
     Indication: RHEUMATOID ARTHRITIS
  4. ATENOLOL [Concomitant]
     Indication: HEART RATE INCREASED
  5. METHOTREXATE [Concomitant]
     Indication: RHEUMATOID ARTHRITIS
     Dosage: 5 TABLETS WEEKLY
  6. NORCO [Concomitant]
     Indication: PAIN
     Dosage: UP TO THREE TIMES A DAY
  7. FOLIC ACID [Concomitant]
     Indication: PRODUCT USED FOR UNKNOWN INDICATION
  8. BIRTH CONTROL [Concomitant]
     Indication: HORMONE LEVEL ABNORMAL
  9. CENTRUM [Concomitant]
     Indication: VITAMIN SUPPLEMENTATION

REACTIONS (2)
  - Limb operation [Recovering/Resolving]
  - Post procedural infection [Recovering/Resolving]
